FAERS Safety Report 7574929-X (Version None)
Quarter: 2011Q2

REPORT INFORMATION
  Report Type: 
  Country: None (occurrence: None)
  Receive Date: 20110627
  Receipt Date: 20110531
  Transmission Date: 20111010
  Serious: Yes (Hospitalization, Other)
  Sender: FDA-Public Use
  Company Number: US-BAYER-2011-009927

PATIENT
  Age: 36 Year
  Sex: Female
  Weight: 63.946 kg

DRUGS (9)
  1. CEFAZOLIN [Concomitant]
     Dosage: UNK
     Dates: start: 20090101
  2. ASCORBIC ACID [Concomitant]
     Dosage: UNK UNK, PRN
     Dates: start: 20010101
  3. YAZ [Suspect]
     Indication: SKIN DISORDER
  4. YAZ [Suspect]
     Indication: CONTRACEPTION
     Dosage: UNK
     Dates: start: 20080502, end: 20090601
  5. YAZ [Suspect]
     Indication: MENSTRUAL DISORDER
  6. SINGULAIR [Concomitant]
     Dosage: UNK
     Dates: start: 20080101, end: 20090101
  7. IBUPROFEN [Concomitant]
  8. ACETAMINOPHEN [Concomitant]
     Indication: PAIN
     Dosage: 2 DF, QID
  9. TORADOL [Concomitant]
     Indication: PAIN
     Dosage: 10 MG, HS
     Dates: start: 20090116

REACTIONS (2)
  - CHOLECYSTITIS [None]
  - GALLBLADDER DISORDER [None]
